FAERS Safety Report 4877862-7 (Version None)
Quarter: 2006Q1

REPORT INFORMATION
  Report Type: 
  Country: None (occurrence: None)
  Receive Date: 20060109
  Receipt Date: 20060102
  Transmission Date: 20060701
  Serious: Yes (Life-Threatening, Hospitalization, Other)
  Sender: FDA-Public Use
  Company Number: NLWYE249620DEC05

PATIENT
  Age: 42 Year
  Sex: Female

DRUGS (1)
  1. EFFEXOR XR [Suspect]
     Indication: MAJOR DEPRESSION
     Dosage: 375 MG 1X PER 1 DAY,  ORAL
     Route: 048
     Dates: start: 20051012, end: 20051127

REACTIONS (4)
  - ABNORMAL BEHAVIOUR [None]
  - DELUSION [None]
  - DRUG INEFFECTIVE [None]
  - HYPOTHERMIA [None]
